FAERS Safety Report 6282502-9 (Version None)
Quarter: 2009Q3

REPORT INFORMATION
  Report Type: 
  Country: None (occurrence: None)
  Receive Date: 20090722
  Receipt Date: 20090709
  Transmission Date: 20100115
  Serious: Yes (Life-Threatening)
  Sender: FDA-Public Use
  Company Number: URSO-2009-043-FUP#1

PATIENT
  Age: 75 Year
  Sex: Male

DRUGS (5)
  1. URSODIOL [Suspect]
     Indication: HEPATITIS C
     Dosage: 900 MG, ORAL;  600MG, ORAL
     Route: 048
     Dates: start: 20070309, end: 20090303
  2. URSODIOL [Suspect]
     Indication: LIVER DISORDER
     Dosage: 900 MG, ORAL;  600MG, ORAL
     Route: 048
     Dates: start: 20070309, end: 20090303
  3. URSODIOL [Suspect]
     Indication: HEPATITIS C
     Dosage: 900 MG, ORAL;  600MG, ORAL
     Route: 048
     Dates: start: 20090304
  4. URSODIOL [Suspect]
     Indication: LIVER DISORDER
     Dosage: 900 MG, ORAL;  600MG, ORAL
     Route: 048
     Dates: start: 20090304
  5. GLYCERON (GLYCYRRHIZIC ACID DL-METHIONINE COMBINED DRUG) [Concomitant]

REACTIONS (1)
  - ANAEMIA [None]
